FAERS Safety Report 10584433 (Version 1)
Quarter: 2014Q4

REPORT INFORMATION
  Report Type: Spontaneous
  Country: US (occurrence: None)
  Receive Date: 20141113
  Receipt Date: 20141113
  Transmission Date: 20150529
  Serious: Yes (Other)
  Sender: FDA-Public Use
  Company Number: None

PATIENT
  Age: 48 Year
  Sex: Female

DRUGS (1)
  1. CITALOPRAM HYDROBROMIDE. [Suspect]
     Active Substance: CITALOPRAM HYDROBROMIDE
     Indication: DEPRESSION
     Dosage: 1/2 PILL, ONCE DAILY, TAKEN BY MOUTH
     Route: 048

REACTIONS (2)
  - Sensitisation [None]
  - Nipple disorder [None]

NARRATIVE: CASE EVENT DATE: 20141112
